FAERS Safety Report 9106077 (Version 4)
Quarter: 2013Q3

REPORT INFORMATION
  Report Type: Report from Study
  Country: IT (occurrence: IT)
  Receive Date: 20130221
  Receipt Date: 20130708
  Transmission Date: 20140515
  Serious: Yes (Hospitalization)
  Sender: FDA-Public Use
  Company Number: IT-JNJFOC-20130207311

PATIENT
  Age: 16 Year
  Sex: Male
  Weight: 59 kg

DRUGS (5)
  1. REMICADE [Suspect]
     Indication: CROHN^S DISEASE
     Route: 042
     Dates: start: 20091013, end: 20111206
  2. HUMIRA [Concomitant]
     Indication: CROHN^S DISEASE
     Route: 065
     Dates: start: 20120119
  3. METHOTREXATE [Concomitant]
     Route: 065
  4. ANTIBIOTICS NOS [Concomitant]
     Indication: CROHN^S DISEASE
     Route: 065
  5. 5-ASA [Concomitant]
     Route: 054

REACTIONS (2)
  - Crohn^s disease [Recovered/Resolved with Sequelae]
  - Intestinal obstruction [Recovered/Resolved with Sequelae]
